FAERS Safety Report 24944620 (Version 2)
Quarter: 2025Q2

REPORT INFORMATION
  Report Type: Report from Study
  Country: US (occurrence: US)
  Receive Date: 20250208
  Receipt Date: 20250428
  Transmission Date: 20250717
  Serious: No
  Sender: BRISTOL-MYERS SQUIBB COMPANY
  Company Number: US-BRISTOL-MYERS SQUIBB COMPANY-2025-019118

PATIENT
  Age: 67 Year
  Sex: Female
  Weight: 67.59 kg

DRUGS (2)
  1. POMALYST [Suspect]
     Active Substance: POMALIDOMIDE
     Indication: Plasma cell myeloma
     Dates: start: 20250121
  2. POMALYST [Suspect]
     Active Substance: POMALIDOMIDE
     Dates: start: 2021

REACTIONS (2)
  - Influenza [Unknown]
  - Gingivitis [Recovered/Resolved]

NARRATIVE: CASE EVENT DATE: 20250201
